FAERS Safety Report 9099591 (Version 2)
Quarter: 2013Q1

REPORT INFORMATION
  Report Type: Spontaneous
  Country: US (occurrence: US)
  Receive Date: 20130214
  Receipt Date: 20130304
  Transmission Date: 20140127
  Serious: No
  Sender: FDA-Public Use
  Company Number: US-PFIZER INC-2013058856

PATIENT
  Age: 66 Year
  Sex: Male
  Weight: 86.17 kg

DRUGS (5)
  1. GEODON [Suspect]
     Indication: DEPRESSION
     Dosage: 40 MG, 2X/DAY
  2. GEODON [Suspect]
     Indication: ANXIETY
  3. NAMENDA [Concomitant]
     Indication: DEPRESSION
     Dosage: 10 MG, 2X/DAY
  4. NAMENDA [Concomitant]
     Indication: ANXIETY
  5. NAMENDA [Concomitant]
     Indication: MEMORY IMPAIRMENT

REACTIONS (1)
  - Alopecia [Not Recovered/Not Resolved]
